FAERS Safety Report 6149733-X (Version None)
Quarter: 2009Q2

REPORT INFORMATION
  Report Type: 
  Country: None (occurrence: None)
  Receive Date: 20090402
  Receipt Date: 20081208
  Transmission Date: 20091009
  Serious: Yes (Other)
  Sender: FDA-Public Use
  Company Number: 2007SU0082FU2

PATIENT
  Age: 66 Year
  Sex: Male
  Weight: 79.3795 kg

DRUGS (5)
  1. SULAR [Suspect]
     Indication: HYPERTENSION
     Dosage: 10 MG, QD20 MG, QD
  2. SULAR [Suspect]
     Indication: HYPERTENSION
  3. SULAR [Suspect]
     Indication: HYPERTENSION
     Dosage: 8.5 MG, QD, PO
     Route: 048
     Dates: start: 20080601
  4. SYNTHROID [Concomitant]
  5. HYPOTHYROIDISM [Concomitant]

REACTIONS (5)
  - CORONARY ARTERY OCCLUSION [None]
  - DRUG INEFFECTIVE [None]
  - DYSPNOEA [None]
  - FEELING ABNORMAL [None]
  - VISUAL IMPAIRMENT [None]
